FAERS Safety Report 9377595 (Version 2)
Quarter: 2013Q3

REPORT INFORMATION
  Report Type: Spontaneous
  Country: IT (occurrence: None)
  Receive Date: 20130625
  Receipt Date: 20130718
  Transmission Date: 20140515
  Serious: Yes (Life-Threatening)
  Sender: FDA-Public Use
  Company Number: INT_00266_2013

PATIENT
  Age: 58 Year
  Sex: Female

DRUGS (3)
  1. FLUCONAZOLE [Concomitant]
  2. IRBESARTAN [Concomitant]
  3. CEFTRIAXON [Suspect]
     Indication: TRACHEITIS
     Route: 030
     Dates: start: 20130528, end: 20130528

REACTIONS (3)
  - Anaphylactic shock [None]
  - Hypotension [None]
  - Laryngeal oedema [None]
